FAERS Safety Report 5285573-1 (Version None)
Quarter: 2007Q1

REPORT INFORMATION
  Report Type: 
  Country: None (occurrence: None)
  Receive Date: 20061229
  Receipt Date: 20061018
  Transmission Date: 20070707
  Serious: Yes (Other)
  Sender: FDA-Public Use
  Company Number: 2006UW20045

PATIENT
  Age: 42 Year
  Sex: Female
  Weight: 63.502 kg

DRUGS (1)
  1. CRESTOR [Suspect]
     Indication: BLOOD CHOLESTEROL INCREASED
     Dosage: 10 MG DAILY PO  (DURATION: A FEW DAYS)
     Route: 048

REACTIONS (1)
  - DYSMENORRHOEA [None]
